FAERS Safety Report 19454314 (Version 4)
Quarter: 2022Q2

REPORT INFORMATION
  Report Type: Spontaneous
  Country: BG (occurrence: BG)
  Receive Date: 20210623
  Receipt Date: 20220517
  Transmission Date: 20220720
  Serious: Yes (Other)
  Sender: FDA-Public Use
  Company Number: BG-BOEHRINGERINGELHEIM-2021-BI-109031

PATIENT
  Age: 68 Year
  Sex: Male

DRUGS (3)
  1. NINTEDANIB [Suspect]
     Active Substance: NINTEDANIB
     Indication: Chemotherapy
     Dosage: DOCETAXEL 75 MG/M2 I.V. ON DAY 1+ VARGATEF 200 MG BID P.O. FROM DAY 2 TO DAY 20-6 CYCLES AT INTERVAL
     Route: 048
     Dates: start: 20200620
  2. NINTEDANIB [Suspect]
     Active Substance: NINTEDANIB
     Route: 048
     Dates: start: 20201030
  3. DOCETAXEL [Concomitant]
     Active Substance: DOCETAXEL
     Indication: Chemotherapy
     Dosage: DOCETAXEL 75 MG/M2 I.V. ON DAY 1+ VARGATEF 200 MG BID P.O. FROM DAY 2 TO DAY 20-6 CYCLES AT INTERVAL
     Route: 042
     Dates: start: 20200619

REACTIONS (6)
  - Neutropenia [Unknown]
  - Epilepsy [Unknown]
  - Diarrhoea [Unknown]
  - Decreased appetite [Unknown]
  - Nausea [Unknown]
  - Vomiting [Unknown]
